FAERS Safety Report 10042113 (Version 2)
Quarter: 2014Q1

REPORT INFORMATION
  Report Type: Spontaneous
  Country: US (occurrence: US)
  Receive Date: 20140327
  Receipt Date: 20140327
  Transmission Date: 20141002
  Serious: Yes (Hospitalization)
  Sender: FDA-Public Use
  Company Number: US-LUNDBECK-DKLU1096976

PATIENT
  Age: 2 Year
  Sex: Male
  Weight: 18 kg

DRUGS (24)
  1. SABRIL (FOR ORAL SOLUTION) [Suspect]
     Indication: INFANTILE SPASMS
     Route: 048
  2. SABRIL (FOR ORAL SOLUTION) [Suspect]
     Route: 048
  3. LAMICTAL [Suspect]
     Indication: PRODUCT USED FOR UNKNOWN INDICATION
     Route: 048
  4. LAMICTAL [Suspect]
     Route: 048
  5. LAMICTAL [Suspect]
     Route: 048
  6. LAMICTAL [Suspect]
     Route: 048
  7. LAMICTAL [Suspect]
     Route: 048
  8. LAMICTAL [Suspect]
     Route: 048
     Dates: start: 20140222
  9. TOPAMAX [Suspect]
     Indication: PRODUCT USED FOR UNKNOWN INDICATION
     Route: 048
  10. TOPAMAX [Suspect]
     Route: 048
  11. TOPAMAX [Suspect]
     Route: 048
  12. TOPAMAX [Suspect]
     Route: 048
     Dates: start: 20140222
  13. TOPAMAX [Suspect]
     Route: 048
     Dates: start: 20140222
  14. KEPPRA [Concomitant]
     Indication: PRODUCT USED FOR UNKNOWN INDICATION
     Route: 048
  15. PYRIDOXINE [Concomitant]
     Indication: PRODUCT USED FOR UNKNOWN INDICATION
     Route: 048
  16. CLONAZEPAM [Concomitant]
     Indication: PRODUCT USED FOR UNKNOWN INDICATION
     Route: 048
  17. ATROVENT [Concomitant]
     Indication: PRODUCT USED FOR UNKNOWN INDICATION
     Dosage: 2 PUFFS
     Route: 050
  18. CLARITIN [Concomitant]
     Indication: PRODUCT USED FOR UNKNOWN INDICATION
     Dosage: 0.5 TABLET
     Route: 050
  19. FLOVENT [Concomitant]
     Indication: PRODUCT USED FOR UNKNOWN INDICATION
     Route: 050
  20. ROBINUL [Concomitant]
     Indication: PRODUCT USED FOR UNKNOWN INDICATION
     Route: 048
  21. VENTOLIN [Concomitant]
     Indication: PRODUCT USED FOR UNKNOWN INDICATION
     Route: 050
  22. ZANTAC [Concomitant]
     Indication: PRODUCT USED FOR UNKNOWN INDICATION
     Route: 048
  23. CALTRATE [Concomitant]
     Indication: PRODUCT USED FOR UNKNOWN INDICATION
     Dosage: 1 TABLET
     Route: 048
  24. METABOLIC COCKTAIL [Concomitant]
     Indication: PRODUCT USED FOR UNKNOWN INDICATION
     Route: 048

REACTIONS (8)
  - Bacterial tracheitis [Unknown]
  - Atelectasis [Unknown]
  - Urine output decreased [Recovering/Resolving]
  - Bradycardia [Unknown]
  - Hypoglycaemia [Recovered/Resolved]
  - Respiratory distress [Recovered/Resolved]
  - Convulsion [Recovering/Resolving]
  - Otitis media [Unknown]
